FAERS Safety Report 6010653-2 (Version None)
Quarter: 2008Q4

REPORT INFORMATION
  Report Type: 
  Country: None (occurrence: None)
  Receive Date: 20081218
  Receipt Date: 20081212
  Transmission Date: 20090506
  Serious: Yes (Other)
  Sender: FDA-Public Use
  Company Number: US-BAYER-200838298NA

PATIENT
  Age: 64 Year
  Sex: Male

DRUGS (2)
  1. LEVITRA [Suspect]
     Indication: ERECTILE DYSFUNCTION
     Dosage: TOTAL DAILY DOSE: 10 MG  UNIT DOSE: 10 MG
     Route: 048
     Dates: start: 20081108, end: 20081108
  2. LISINOPRIL [Concomitant]
     Indication: HYPERTENSION
     Dates: start: 20040101

REACTIONS (3)
  - DIZZINESS [None]
  - FEELING ABNORMAL [None]
  - GLOBAL AMNESIA [None]
